FAERS Safety Report 6460499-6 (Version None)
Quarter: 2009Q4

REPORT INFORMATION
  Report Type: 
  Country: None (occurrence: None)
  Receive Date: 20091130
  Receipt Date: 20091118
  Transmission Date: 20100525
  Serious: Yes (Other)
  Sender: FDA-Public Use
  Company Number: JP-JNJFOC-20091104920

PATIENT
  Age: 31 Year
  Sex: Female

DRUGS (1)
  1. CRAVIT [Suspect]
     Indication: CYSTITIS
     Route: 048
     Dates: start: 20091101, end: 20091101

REACTIONS (2)
  - GAZE PALSY [None]
  - LOSS OF CONSCIOUSNESS [None]
